FAERS Safety Report 4841498-4 (Version None)
Quarter: 2005Q4

REPORT INFORMATION
  Report Type: 
  Country: None (occurrence: None)
  Receive Date: 20051130
  Receipt Date: 20050809
  Transmission Date: 20060501
  Serious: No
  Sender: FDA-Public Use
  Company Number: US-GLAXOSMITHKLINE-A0569517A

PATIENT
  Age: 42 Year
  Sex: Male

DRUGS (2)
  1. WELLBUTRIN XL [Suspect]
     Indication: DEPRESSION
     Dosage: 150MG PER DAY
     Route: 048
     Dates: start: 20050701
  2. LEVAQUIN [Concomitant]
     Indication: INFECTION

REACTIONS (2)
  - RASH [None]
  - RASH ERYTHEMATOUS [None]
